FAERS Safety Report 8590309-2 (Version None)
Quarter: 2012Q3

REPORT INFORMATION
  Report Type: 
  Country: None (occurrence: None)
  Receive Date: 20120813
  Receipt Date: 20120802
  Transmission Date: 20120928
  Serious: Yes (Hospitalization)
  Sender: FDA-Public Use
  Company Number: JP-GLAXOSMITHKLINE-B0820546A

PATIENT
  Sex: Female

DRUGS (1)
  1. LAMICTAL [Suspect]
     Indication: BIPOLAR DISORDER
     Dosage: 25MG PER DAY
     Route: 048
     Dates: start: 20111109, end: 20111205

REACTIONS (13)
  - PANCYTOPENIA [None]
  - HEPATIC FUNCTION ABNORMAL [None]
  - ALANINE AMINOTRANSFERASE INCREASED [None]
  - CONJUNCTIVAL HYPERAEMIA [None]
  - WHITE BLOOD CELL COUNT DECREASED [None]
  - GAMMA-GLUTAMYLTRANSFERASE INCREASED [None]
  - GENERALISED ERYTHEMA [None]
  - PLATELET COUNT DECREASED [None]
  - HISTIOCYTOSIS HAEMATOPHAGIC [None]
  - RASH [None]
  - HYPERTHERMIA [None]
  - HAEMOGLOBIN DECREASED [None]
  - LYMPHADENOPATHY [None]
